FAERS Safety Report 16931678 (Version 1)
Quarter: 2019Q4

REPORT INFORMATION
  Report Type: Spontaneous
  Country: CA (occurrence: CA)
  Receive Date: 20191017
  Receipt Date: 20191017
  Transmission Date: 20200122
  Serious: Yes (Life-Threatening, Other)
  Sender: FDA-Public Use
  Company Number: CA-TEVA-2019-CA-1123930

PATIENT
  Age: 54 Year
  Sex: Male
  Weight: 102 kg

DRUGS (1)
  1. DULOXETINE. [Suspect]
     Active Substance: DULOXETINE
     Indication: FIBROMYALGIA
     Dosage: 30 MILLIGRAM DAILY;
     Route: 048

REACTIONS (8)
  - Fatigue [Unknown]
  - Paraesthesia [Unknown]
  - Anger [Unknown]
  - Agitation [Unknown]
  - Influenza like illness [Unknown]
  - Lethargy [Unknown]
  - Suicidal ideation [Unknown]
  - Vertigo [Unknown]
